FAERS Safety Report 20690431 (Version 1)
Quarter: 2022Q2

REPORT INFORMATION
  Report Type: Spontaneous
  Country: CA (occurrence: CA)
  Receive Date: 20220408
  Receipt Date: 20220408
  Transmission Date: 20220721
  Serious: Yes (Disabling, Other)
  Sender: FDA-Public Use
  Company Number: CA-OTSUKA-2021_043353

PATIENT
  Sex: Female
  Weight: 77.1 kg

DRUGS (8)
  1. ABILIFY MAINTENA [Suspect]
     Active Substance: ARIPIPRAZOLE
     Indication: Psychotic disorder
     Dosage: 400 MG
     Route: 030
  2. CELECOXIB [Suspect]
     Active Substance: CELECOXIB
     Indication: Bipolar disorder
     Dosage: 20 MG
     Route: 065
  3. DIAZEPAM [Suspect]
     Active Substance: DIAZEPAM
     Indication: Bipolar disorder
     Dosage: 750 MG
     Route: 065
  4. RISPERIDONE [Suspect]
     Active Substance: RISPERIDONE
     Indication: Psychotic disorder
     Dosage: UNK
     Route: 065
  5. ASPIRIN [Concomitant]
     Active Substance: ASPIRIN
     Indication: Product used for unknown indication
     Dosage: UNK
     Route: 065
  6. CALCIUM\MAGNESIUM [Concomitant]
     Active Substance: CALCIUM\MAGNESIUM
     Indication: Osteoporosis
     Dosage: UNK
     Route: 065
  7. DOCONEXENT\ICOSAPENT [Concomitant]
     Active Substance: DOCONEXENT\ICOSAPENT
     Indication: Product used for unknown indication
     Dosage: UNK
     Route: 065
  8. TYLENOL [Concomitant]
     Active Substance: ACETAMINOPHEN
     Indication: Headache
     Dosage: UNK
     Route: 065

REACTIONS (9)
  - Grief reaction [Unknown]
  - Pain in extremity [Unknown]
  - Urinary incontinence [Unknown]
  - Fatigue [Unknown]
  - Somnolence [Unknown]
  - Weight increased [Unknown]
  - Overwork [Unknown]
  - Theft [Unknown]
  - Product use in unapproved indication [Unknown]
